FAERS Safety Report 9159206 (Version 1)
Quarter: 2013Q1

REPORT INFORMATION
  Report Type: Spontaneous
  Country: IN (occurrence: None)
  Receive Date: 20130213
  Receipt Date: 20130213
  Transmission Date: 20140127
  Serious: Yes (Hospitalization, Other)
  Sender: FDA-Public Use
  Company Number: AUR-APL-2013-01226

PATIENT
  Age: 15 Year
  Sex: Male
  Weight: 30 kg

DRUGS (3)
  1. DIVALPROEX (VALPROATE SEMISODIUM) [Suspect]
     Indication: CONVULSION
  2. PHENYTOIN (PHENYTOIN) [Concomitant]
     Dosage: 200 MG (7MG/KG DAILY, UNKNOWN
  3. CLONAZEPAM (CLONAZEPAM) (CLONAZEPAM) [Concomitant]
     Dosage: 0.5 MG, 1 D, UNK

REACTIONS (11)
  - Fall [None]
  - Subgaleal haematoma [None]
  - Eye swelling [None]
  - Anaemia [None]
  - Convulsion [None]
  - Meningitis bacterial [None]
  - Anticonvulsant drug level increased [None]
  - Haematotoxicity [None]
  - Coagulopathy [None]
  - International normalised ratio abnormal [None]
  - Toxicity to various agents [None]
